FAERS Safety Report 5050043-2 (Version None)
Quarter: 2006Q2

REPORT INFORMATION
  Report Type: 
  Country: None (occurrence: None)
  Receive Date: 20060601
  Receipt Date: 20060321
  Transmission Date: 20061013
  Serious: No
  Sender: FDA-Public Use
  Company Number: US200602003195

PATIENT
  Age: 28 Year
  Sex: Female
  Weight: 63.5 kg

DRUGS (4)
  1. CYMBALTA [Suspect]
     Indication: BACK PAIN
     Dosage: 30 MG, ORAL
     Route: 048
     Dates: start: 20050101
  2. ADVAIR DISKUS 100/50 [Concomitant]
  3. SINGULAIR ^DIECKMANN^ (MONTELUKAST SODIUM) [Concomitant]
  4. ALBUTEROL [Concomitant]

REACTIONS (1)
  - NO ADVERSE DRUG EFFECT [None]
